FAERS Safety Report 7609849-5 (Version None)
Quarter: 2011Q3

REPORT INFORMATION
  Report Type: 
  Country: None (occurrence: None)
  Receive Date: 20110714
  Receipt Date: 20110705
  Transmission Date: 20111222
  Serious: Yes (Other)
  Sender: FDA-Public Use
  Company Number: US-ABBOTT-11P-163-0723153-00

PATIENT
  Sex: Female
  Weight: 74.91 kg

DRUGS (8)
  1. HUMIRA [Suspect]
     Indication: RHEUMATOID ARTHRITIS
     Route: 058
     Dates: start: 20060101, end: 20110301
  2. LEVOTHYROXINE [Concomitant]
     Indication: THYROIDECTOMY
  3. VITAMIN TAB [Concomitant]
     Indication: VITAMIN SUPPLEMENTATION
  4. ASPIRIN [Concomitant]
     Indication: PRODUCT USED FOR UNKNOWN INDICATION
  5. AMLODIPINE [Concomitant]
     Indication: HYPERTENSION
  6. RAMIPRIL [Concomitant]
     Indication: HYPERTENSION
  7. WARFARIN SODIUM [Concomitant]
     Indication: ATRIAL FIBRILLATION
  8. FISH OIL [Concomitant]
     Indication: SUPPLEMENTATION THERAPY

REACTIONS (6)
  - MULTIPLE MYELOMA [None]
  - RHEUMATOID ARTHRITIS [None]
  - VON WILLEBRAND'S DISEASE [None]
  - MOBILITY DECREASED [None]
  - BLOOD IMMUNOGLOBULIN M INCREASED [None]
  - TOOTH INFECTION [None]
